FAERS Safety Report 7913695-2 (Version None)
Quarter: 2011Q4

REPORT INFORMATION
  Report Type: 
  Country: None (occurrence: None)
  Receive Date: 20111110
  Receipt Date: 20111027
  Transmission Date: 20120403
  Serious: Yes (Hospitalization)
  Sender: FDA-Public Use
  Company Number: US-JNJFOC-20110903496

PATIENT
  Age: 45 Year
  Sex: Male
  Weight: 65.7 kg

DRUGS (17)
  1. ACTIQ [Concomitant]
  2. DACOGEN [Suspect]
     Indication: COLORECTAL CANCER METASTATIC
     Dosage: SEE IMAGE
     Route: 042
     Dates: start: 20110916, end: 20110916
  3. DACOGEN [Suspect]
     Indication: COLORECTAL CANCER METASTATIC
     Dosage: SEE IMAGE
     Route: 042
     Dates: start: 20110928, end: 20110928
  4. DACOGEN [Suspect]
     Indication: COLORECTAL CANCER METASTATIC
     Dosage: SEE IMAGE
     Route: 042
     Dates: start: 20111021, end: 20111021
  5. DACOGEN [Suspect]
     Indication: COLORECTAL CANCER METASTATIC
     Dosage: SEE IMAGE
     Route: 042
     Dates: start: 20110902, end: 20110902
  6. DACOGEN [Suspect]
     Indication: COLORECTAL CANCER METASTATIC
     Dosage: SEE IMAGE
     Route: 042
     Dates: start: 20110729, end: 20110729
  7. SENNA S (SENOKOT-S) [Concomitant]
  8. PANITUMUMAB (PANITUMUMAB) UNSPECIFIED [Suspect]
     Indication: COLORECTAL CANCER METASTATIC
     Dosage: SEE IMAGE
     Route: 042
     Dates: start: 20111014, end: 20111014
  9. PANITUMUMAB (PANITUMUMAB) UNSPECIFIED [Suspect]
     Indication: COLORECTAL CANCER METASTATIC
     Dosage: SEE IMAGE
     Route: 042
     Dates: start: 20110909, end: 20110909
  10. PANITUMUMAB (PANITUMUMAB) UNSPECIFIED [Suspect]
     Indication: COLORECTAL CANCER METASTATIC
     Dosage: SEE IMAGE
     Route: 042
     Dates: start: 20110826, end: 20110826
  11. PANITUMUMAB (PANITUMUMAB) UNSPECIFIED [Suspect]
     Indication: COLORECTAL CANCER METASTATIC
     Dosage: SEE IMAGE
     Route: 042
     Dates: start: 20110923, end: 20110923
  12. PANITUMUMAB (PANITUMUMAB) UNSPECIFIED [Suspect]
     Indication: COLORECTAL CANCER METASTATIC
     Dosage: SEE IMAGE
     Route: 042
     Dates: start: 20110805, end: 20110805
  13. RITALIN [Concomitant]
  14. GABAPENTIN [Concomitant]
  15. CYMBALTA [Concomitant]
  16. TRAZODONE HCL [Concomitant]
  17. AMBIEN [Concomitant]

REACTIONS (23)
  - HYPERHIDROSIS [None]
  - CULTURE WOUND POSITIVE [None]
  - CONFUSIONAL STATE [None]
  - DEEP VEIN THROMBOSIS [None]
  - URINARY TRACT INFECTION [None]
  - HYPOTENSION [None]
  - BACTERAEMIA [None]
  - CITROBACTER TEST POSITIVE [None]
  - ELECTROLYTE IMBALANCE [None]
  - BACTERIAL TEST POSITIVE [None]
  - BLOOD CREATININE INCREASED [None]
  - PYREXIA [None]
  - HYPOCALCAEMIA [None]
  - PROTEINURIA [None]
  - KLEBSIELLA TEST POSITIVE [None]
  - ENTEROBACTER TEST POSITIVE [None]
  - SERRATIA TEST POSITIVE [None]
  - HYPOKALAEMIA [None]
  - ANAEMIA [None]
  - OEDEMA PERIPHERAL [None]
  - SYSTEMIC INFLAMMATORY RESPONSE SYNDROME [None]
  - HYDRONEPHROSIS [None]
  - TUMOUR HAEMORRHAGE [None]
